FAERS Safety Report 7593886-3 (Version None)
Quarter: 2011Q3

REPORT INFORMATION
  Report Type: 
  Country: None (occurrence: None)
  Receive Date: 20110706
  Receipt Date: 20110630
  Transmission Date: 20111222
  Serious: Yes (Death, Congenital Anomaly)
  Sender: FDA-Public Use
  Company Number: PHHY2011FR58512

PATIENT

DRUGS (2)
  1. FOLIC ACID [Concomitant]
     Dosage: MATERNAL DOSE: 5 MG
     Route: 064
  2. TEGRETOL [Suspect]
     Indication: TEMPORAL LOBE EPILEPSY
     Dosage: MATERNAL DOSE: 600 MG ONCE A DAY
     Route: 064

REACTIONS (3)
  - ARNOLD-CHIARI MALFORMATION [None]
  - MATERNAL EXPOSURE DURING PREGNANCY [None]
  - SPINA BIFIDA [None]
